FAERS Safety Report 22124313 (Version 1)
Quarter: 2023Q1

REPORT INFORMATION
  Report Type: Spontaneous
  Country: US (occurrence: None)
  Receive Date: 20230321
  Receipt Date: 20230321
  Transmission Date: 20230418
  Serious: Yes (Hospitalization)
  Sender: FDA-Public Use
  Company Number: None

PATIENT
  Age: 24 Year
  Sex: Female
  Weight: 124 kg

DRUGS (1)
  1. TRI FEMYNOR [Suspect]
     Active Substance: ETHINYL ESTRADIOL\NORGESTIMATE
     Dosage: FREQUENCY : DAILY;?
     Route: 048

REACTIONS (4)
  - Fall [None]
  - Ulna fracture [None]
  - Pulmonary embolism [None]
  - Pulmonary infarction [None]

NARRATIVE: CASE EVENT DATE: 20230223
